FAERS Safety Report 4317377-8 (Version None)
Quarter: 2004Q1

REPORT INFORMATION
  Report Type: 
  Country: None (occurrence: None)
  Receive Date: 20040316
  Receipt Date: 20040316
  Transmission Date: 20041129
  Serious: No
  Sender: FDA-Public Use
  Company Number: None

PATIENT
  Age: 14 Year
  Sex: Female
  Weight: 83.0083 kg

DRUGS (5)
  1. LAMICTAL [Suspect]
     Indication: BIPOLAR DISORDER
     Dosage: 100 MG PO DAILY
     Route: 048
     Dates: start: 20040106
  2. REMERON [Concomitant]
  3. SEROQUEL [Concomitant]
  4. LITHIUM CARBONATE [Concomitant]
  5. STRATTERA [Concomitant]

REACTIONS (2)
  - DYSURIA [None]
  - STEVENS-JOHNSON SYNDROME [None]
